FAERS Safety Report 6259627-7 (Version None)
Quarter: 2009Q3

REPORT INFORMATION
  Report Type: 
  Country: None (occurrence: None)
  Receive Date: 20090708
  Receipt Date: 20090629
  Transmission Date: 20100115
  Serious: Yes (Other)
  Sender: FDA-Public Use
  Company Number: US-JNJFOC-20090700470

PATIENT
  Sex: Female
  Weight: 81.19 kg

DRUGS (2)
  1. RISPERDAL CONSTA [Suspect]
     Route: 030
  2. RISPERDAL CONSTA [Suspect]
     Indication: DRUG USE FOR UNKNOWN INDICATION
     Route: 030

REACTIONS (4)
  - HYPERPROLACTINAEMIA [None]
  - LOWER LIMB FRACTURE [None]
  - OSTEOMYELITIS [None]
  - WEIGHT INCREASED [None]
